FAERS Safety Report 6698232-5 (Version None)
Quarter: 2010Q2

REPORT INFORMATION
  Report Type: 
  Country: None (occurrence: None)
  Receive Date: 20100427
  Receipt Date: 20100421
  Transmission Date: 20101027
  Serious: Yes (Hospitalization, Other)
  Sender: FDA-Public Use
  Company Number: US-BRISTOL-MYERS SQUIBB COMPANY-15074800

PATIENT
  Age: 68 Year
  Sex: Male
  Weight: 82 kg

DRUGS (20)
  1. CISPLATIN [Suspect]
     Indication: OROPHARYNGEAL CANCER STAGE UNSPECIFIED
     Route: 065
  2. RADIATION THERAPY [Suspect]
     Indication: OROPHARYNGEAL CANCER STAGE UNSPECIFIED
     Route: 065
  3. LIPITOR [Concomitant]
     Dates: start: 19970101
  4. ENALAPRIL MALEATE [Concomitant]
     Dates: start: 19970101
  5. PLAVIX [Concomitant]
     Dates: start: 19970101
  6. GLIMEPIRIDE [Concomitant]
     Dates: start: 20080101
  7. ZETIA [Concomitant]
     Dates: start: 20080101
  8. ASPIRIN [Concomitant]
     Dates: start: 19970101
  9. VOLTAREN [Concomitant]
     Dates: start: 20091010
  10. LORTAB [Concomitant]
     Dosage: 1 DF = 7.5/500 UNITS NOT SPECIFIED
     Dates: start: 20091012
  11. SENNA [Concomitant]
     Dates: start: 20090928
  12. ACTOPLUS MET [Concomitant]
     Dates: start: 20080101
  13. VITAMIN B-12 [Concomitant]
     Dosage: TABS
     Dates: start: 20080101
  14. VITAMIN B6 [Concomitant]
     Dates: start: 20080101
  15. MULTI-VITAMIN [Concomitant]
     Dosage: TABS
     Dates: start: 20080101
  16. FISH OIL [Concomitant]
     Dates: start: 20080101
  17. EMEND [Concomitant]
     Dates: start: 20091013, end: 20091014
  18. DEXAMETHASONE [Concomitant]
     Dates: start: 20091013, end: 20091014
  19. REGLAN [Concomitant]
     Dates: start: 20091015
  20. PHENERGAN [Concomitant]
     Dates: start: 20090921

REACTIONS (6)
  - ANAEMIA [None]
  - DECREASED APPETITE [None]
  - DYSGEUSIA [None]
  - FATIGUE [None]
  - NAUSEA [None]
  - WEIGHT DECREASED [None]
